FAERS Safety Report 8479127-3 (Version None)
Quarter: 2012Q2

REPORT INFORMATION
  Report Type: 
  Country: None (occurrence: None)
  Receive Date: 20120629
  Receipt Date: 20120627
  Transmission Date: 20120825
  Serious: Yes (Death, Hospitalization, Other)
  Sender: FDA-Public Use
  Company Number: US-BRISTOL-MYERS SQUIBB COMPANY-16208233

PATIENT
  Age: 59 Year
  Sex: Male

DRUGS (3)
  1. BELATACEPT [Suspect]
     Indication: RENAL TRANSPLANT
     Route: 042
     Dates: start: 20070411, end: 20110922
  2. IMURAN [Concomitant]
     Dates: start: 20100804
  3. PREDNISONE TAB [Suspect]
     Indication: RENAL TRANSPLANT
     Dates: start: 20090609

REACTIONS (7)
  - PNEUMONIA [None]
  - AZOTAEMIA [None]
  - SEPSIS [None]
  - TRANSPLANT FAILURE [None]
  - BACTERAEMIA [None]
  - LOCALISED INFECTION [None]
  - RESPIRATORY FAILURE [None]
